FAERS Safety Report 9822193 (Version 2)
Quarter: 2014Q1

REPORT INFORMATION
  Report Type: Spontaneous
  Country: US (occurrence: US)
  Receive Date: 20140116
  Receipt Date: 20140117
  Transmission Date: 20141002
  Serious: Yes (Other)
  Sender: FDA-Public Use
  Company Number: US-ROXANE LABORATORIES, INC.-2014-RO-00064RO

PATIENT
  Sex: Male

DRUGS (2)
  1. BUPRENORPHINE HYDROCHLORIDE [Suspect]
     Indication: PAIN
     Dosage: 24 MG
     Route: 060
     Dates: start: 2010
  2. BUPRENORPHINE HYDROCHLORIDE [Suspect]
     Dosage: 16 MG
     Route: 060

REACTIONS (1)
  - Platelet count decreased [Not Recovered/Not Resolved]
